FAERS Safety Report 16099655 (Version 1)
Quarter: 2019Q1

REPORT INFORMATION
  Report Type: Spontaneous
  Country: US (occurrence: US)
  Receive Date: 20190218
  Receipt Date: 20190218
  Transmission Date: 20190418
  Serious: No
  Sender: FDA-Public Use
  Company Number: None

PATIENT
  Age: 45 Year
  Sex: Female

DRUGS (1)
  1. HUMIRA [Suspect]
     Active Substance: ADALIMUMAB
     Indication: CROHN^S DISEASE
     Dosage: ?          OTHER FREQUENCY:ON DAY 1;?
     Route: 058
     Dates: start: 20190110, end: 20190110

REACTIONS (4)
  - Rash [None]
  - Lymphadenopathy [None]
  - Upper respiratory tract infection [None]
  - Rash pruritic [None]

NARRATIVE: CASE EVENT DATE: 20190110
